FAERS Safety Report 7301221-0 (Version None)
Quarter: 2011Q1

REPORT INFORMATION
  Report Type: 
  Country: None (occurrence: None)
  Receive Date: 20110218
  Receipt Date: 20110207
  Transmission Date: 20110831
  Serious: Yes (Other)
  Sender: FDA-Public Use
  Company Number: BR-ELI_LILLY_AND_COMPANY-BR201102001858

PATIENT
  Age: 50 Year
  Sex: Female
  Weight: 54 kg

DRUGS (7)
  1. PREDNISONE [Concomitant]
     Indication: SYSTEMIC LUPUS ERYTHEMATOSUS
     Dosage: 5 MG, DAILY (1/D)
     Route: 048
     Dates: start: 19990101
  2. MYCOPHENOLATE MOFETIL [Concomitant]
     Indication: RENAL TRANSPLANT
     Dosage: 500 MG, 2/D
     Route: 048
     Dates: start: 20040101
  3. OMEPRAZOLE [Concomitant]
     Indication: GASTRITIS
     Dosage: 20 MG, 2/D
     Route: 048
     Dates: start: 19990101
  4. ATENOLOL [Concomitant]
     Indication: HYPERTENSION
     Dosage: 25 MG, DAILY (1/D)
     Route: 048
     Dates: start: 20040101
  5. FORTEO [Suspect]
     Indication: OSTEOPOROSIS
     Dosage: UNK, DAILY (1/D)
     Route: 065
     Dates: start: 20090101
  6. CALCIUM [Concomitant]
     Indication: OSTEOPOROSIS
     Dosage: 60 MG, DAILY (1/D)
     Route: 048
     Dates: start: 20090101
  7. AAS [Concomitant]
     Indication: BLOOD DISORDER
     Dosage: UNK, DAILY (1/D)
     Route: 048
     Dates: start: 20040101

REACTIONS (2)
  - SPINAL FRACTURE [None]
  - BACK PAIN [None]
